FAERS Safety Report 6681449-3 (Version None)
Quarter: 2010Q2

REPORT INFORMATION
  Report Type: 
  Country: None (occurrence: None)
  Receive Date: 20100414
  Receipt Date: 20100330
  Transmission Date: 20101027
  Serious: Yes (Other)
  Sender: FDA-Public Use
  Company Number: US-SANOFI-AVENTIS-200914935US

PATIENT
  Sex: Female

DRUGS (6)
  1. LANTUS [Suspect]
     Dosage: DOSE:60 UNIT(S)
     Route: 058
     Dates: start: 20060101
  2. LANTUS [Suspect]
     Dosage: DOSE:65 UNIT(S)
     Route: 058
     Dates: start: 20050101
  3. OPTICLICK [Suspect]
     Dates: start: 20060101
  4. OPTICLICK [Suspect]
     Dates: start: 20050101
  5. METFORMIN HCL [Concomitant]
  6. HUMULIN R [Concomitant]

REACTIONS (3)
  - ANGINA PECTORIS [None]
  - BLOOD GLUCOSE FLUCTUATION [None]
  - CORONARY ARTERY OCCLUSION [None]
